FAERS Safety Report 9357995 (Version 1)
Quarter: 2013Q2

REPORT INFORMATION
  Report Type: Spontaneous
  Country: US (occurrence: US)
  Receive Date: 20130620
  Receipt Date: 20130620
  Transmission Date: 20140414
  Serious: Yes (Disabling, Other)
  Sender: FDA-Public Use
  Company Number: US-PFIZER INC-2013184705

PATIENT
  Age: 51 Year
  Sex: Female
  Weight: 98.87 kg

DRUGS (15)
  1. LYRICA [Suspect]
     Indication: FIBROMYALGIA
     Dosage: 75 MG, 3X/DAY
     Dates: start: 2011, end: 20130603
  2. BACLOFEN [Concomitant]
     Indication: MUSCLE RELAXANT THERAPY
     Dosage: 20 MG, 3X/DAY
  3. BACLOFEN [Concomitant]
     Dosage: 20 MG, AS NEEDED
  4. CALCIUM POLYCARBOPHIL [Concomitant]
     Dosage: 625 MG, 2X/DAY
  5. CRESTOR [Concomitant]
     Dosage: 10 MG, 1X/DAY
  6. HYDROCHLOROTHIAZIDE [Concomitant]
     Indication: FLUID RETENTION
     Dosage: 12.5 MG DAILY
  7. HYDROCODONE W/ACETAMINOPHEN [Concomitant]
     Indication: PAIN
     Dosage: 10/325 MG, AS NEEDED
  8. LOVASTATIN [Concomitant]
     Dosage: 20 MG, 1X/DAY
  9. MELOXICAM [Concomitant]
     Dosage: 7.5 MG, 1X/DAY
  10. OMEPRAZOLE [Concomitant]
     Indication: GASTROOESOPHAGEAL REFLUX DISEASE
     Dosage: 20 MG DAILY
  11. PROZAC [Concomitant]
     Indication: DEPRESSION
     Dosage: 40 MG DAILY
  12. SYNTHROID [Concomitant]
     Indication: HYPOTHYROIDISM
     Dosage: 25 MCG DAILY
  13. TRAZODONE [Concomitant]
     Indication: INSOMNIA
     Dosage: 150 MG DAILY
  14. TRAZODONE [Concomitant]
     Indication: DEPRESSION
  15. XANAX [Concomitant]
     Indication: ANXIETY
     Dosage: 0.5 MG, AS NEEDED

REACTIONS (3)
  - Rheumatoid arthritis [Unknown]
  - Migraine [Unknown]
  - Pain [Not Recovered/Not Resolved]
